FAERS Safety Report 23335615 (Version 1)
Quarter: 2023Q4

REPORT INFORMATION
  Report Type: Spontaneous
  Country: GB (occurrence: GB)
  Receive Date: 20231225
  Receipt Date: 20231225
  Transmission Date: 20240109
  Serious: Yes (Hospitalization, Other)
  Sender: FDA-Public Use
  Company Number: None

PATIENT
  Age: 61 Year
  Sex: Female

DRUGS (4)
  1. OMEPRAZOLE [Suspect]
     Active Substance: OMEPRAZOLE
  2. PREGABALIN [Concomitant]
     Active Substance: PREGABALIN
     Route: 042
  3. THIAMINE [Concomitant]
     Active Substance: THIAMINE
     Dosage: 3 SEPARATED DOSES
     Route: 042
  4. FLUOXETINE [Concomitant]
     Active Substance: FLUOXETINE HYDROCHLORIDE
     Route: 042

REACTIONS (1)
  - Hypomagnesaemia [Recovered/Resolved]
